FAERS Safety Report 25510185 (Version 1)
Quarter: 2025Q3

REPORT INFORMATION
  Report Type: Spontaneous
  Country: US (occurrence: US)
  Receive Date: 20250703
  Receipt Date: 20250703
  Transmission Date: 20251020
  Serious: No
  Sender: RADIUS PHARM
  Company Number: US-RADIUS HEALTH INC.-2024US005728

PATIENT
  Sex: Female

DRUGS (4)
  1. TYMLOS [Suspect]
     Active Substance: ABALOPARATIDE
     Indication: Senile osteoporosis
     Route: 058
  2. TYMLOS [Suspect]
     Active Substance: ABALOPARATIDE
  3. TYMLOS [Suspect]
     Active Substance: ABALOPARATIDE
     Route: 058
  4. TYMLOS [Suspect]
     Active Substance: ABALOPARATIDE

REACTIONS (7)
  - Heart rate increased [Recovered/Resolved]
  - Product dose omission in error [Unknown]
  - Intentional product misuse [Not Recovered/Not Resolved]
  - Wrist fracture [Unknown]
  - Palpitations [Recovered/Resolved]
  - COVID-19 [Unknown]
  - Intentional dose omission [Recovered/Resolved]
